FAERS Safety Report 8480203-X (Version None)
Quarter: 2012Q2

REPORT INFORMATION
  Report Type: 
  Country: None (occurrence: None)
  Receive Date: 20120629
  Receipt Date: 20120622
  Transmission Date: 20120825
  Serious: Yes (Hospitalization)
  Sender: FDA-Public Use
  Company Number: JP-MERCK-1206USA04770

PATIENT
  Age: 56 Year
  Sex: Female

DRUGS (3)
  1. CRESTOR [Concomitant]
     Indication: BLOOD CHOLESTEROL INCREASED
     Route: 048
     Dates: start: 20110325, end: 20120508
  2. JANUVIA [Suspect]
     Indication: TYPE 2 DIABETES MELLITUS
     Route: 048
     Dates: start: 20110325
  3. DEPAS [Concomitant]
     Indication: INSOMNIA
     Route: 048
     Dates: start: 20110325

REACTIONS (1)
  - INTESTINAL OBSTRUCTION [None]
